FAERS Safety Report 10733360 (Version 1)
Quarter: 2015Q1

REPORT INFORMATION
  Report Type: Spontaneous
  Country: US (occurrence: None)
  Receive Date: 20150120
  Receipt Date: 20150120
  Transmission Date: 20150721
  Serious: Yes (Hospitalization)
  Sender: FDA-Public Use
  Company Number: 201501067

PATIENT
  Age: 56 Year
  Sex: Male

DRUGS (9)
  1. PAPAVERINE (PAPAVERINE) [Concomitant]
  2. TESTOSTERONE CYPIONATE (TESTOSTERONE CIPIONATE) [Concomitant]
  3. MAGNESIUM (MAGNESIUM) [Concomitant]
     Active Substance: MAGNESIUM
  4. CIALIS [Concomitant]
     Active Substance: TADALAFIL
  5. SELENIUM (SELENIUM) [Concomitant]
  6. XIAFLEX [Suspect]
     Active Substance: COLLAGENASE CLOSTRIDIUM HISTOLYTICUM
     Indication: PEYRONIE^S DISEASE
     Dosage: 0.58 MG, 1 IN 1 D, INTRALESIONAL
     Dates: start: 20140819, end: 20140819
  7. LOSARTAN (LOSARTAN) [Concomitant]
     Active Substance: LOSARTAN
  8. PRO-OMEGA (PROXYPHYLLINE, CRATAEGUS LAEVIGATA, CONVALLARIA MAJALIS) [Concomitant]
  9. SAW PALMETTO (SERENOA REPENS) [Concomitant]
     Active Substance: SAW PALMETTO

REACTIONS (3)
  - Penile haematoma [None]
  - Venous injury [None]
  - Fracture of penis [None]

NARRATIVE: CASE EVENT DATE: 20141230
